FAERS Safety Report 10513651 (Version 2)
Quarter: 2015Q1

REPORT INFORMATION
  Report Type: Spontaneous
  Country: FR (occurrence: FR)
  Receive Date: 20141013
  Receipt Date: 20150304
  Transmission Date: 20150720
  Serious: Yes (Disabling)
  Sender: FDA-Public Use
  Company Number: FR-SA-2014SA136167

PATIENT
  Age: 68 Year
  Sex: Female

DRUGS (9)
  1. VITAMIN B1 [Concomitant]
     Active Substance: THIAMINE HYDROCHLORIDE
     Route: 048
     Dates: start: 20140313
  2. BETAMETHASONE [Concomitant]
     Active Substance: BETAMETHASONE
     Dosage: ROUT: CUT
  3. RIFATER [Suspect]
     Active Substance: ISONIAZID\PYRAZINAMIDE\RIFAMPIN
     Indication: TUBERCULOSIS
     Dosage: DOSE:5 UNIT(S)
     Route: 048
     Dates: start: 20140313, end: 20140516
  4. RIFINAH [Suspect]
     Active Substance: ISONIAZID\RIFAMPIN
     Indication: TUBERCULOSIS
     Dosage: DOSE:2 UNIT(S)
     Route: 048
     Dates: start: 20140516, end: 20140612
  5. MIOREL [Concomitant]
     Active Substance: ORPHENADRINE
     Route: 048
  6. MYAMBUTOL [Suspect]
     Active Substance: ETHAMBUTOL HYDROCHLORIDE
     Indication: TUBERCULOSIS
     Dosage: STRENGTH: 400 MG
     Route: 048
     Dates: start: 20140313, end: 20140516
  7. VOLTARENE [Concomitant]
     Active Substance: DICLOFENAC SODIUM
     Route: 048
  8. DOLIPRANE [Concomitant]
     Active Substance: ACETAMINOPHEN
     Route: 048
  9. VITAMIN B6 [Concomitant]
     Active Substance: PYRIDOXINE HYDROCHLORIDE
     Route: 048
     Dates: start: 20140313

REACTIONS (2)
  - Optic neuritis [Not Recovered/Not Resolved]
  - Gastrointestinal disorder [Recovered/Resolved]

NARRATIVE: CASE EVENT DATE: 20140505
